FAERS Safety Report 18263563 (Version 1)
Quarter: 2020Q3

REPORT INFORMATION
  Report Type: Spontaneous
  Country: US (occurrence: US)
  Receive Date: 20200914
  Receipt Date: 20200914
  Transmission Date: 20201103
  Serious: No
  Sender: FDA-Public Use
  Company Number: US-ELI_LILLY_AND_COMPANY-US202008001142

PATIENT
  Age: 71 Year
  Sex: Female

DRUGS (3)
  1. EMGALITY [Suspect]
     Active Substance: GALCANEZUMAB-GNLM
     Dosage: 01 DOSAGE FORM, UNKNOWN
     Route: 065
     Dates: start: 202009
  2. EMGALITY [Suspect]
     Active Substance: GALCANEZUMAB-GNLM
     Indication: PRODUCT USED FOR UNKNOWN INDICATION
     Dosage: 01 DOSAGE FORM, UNKNOWN
     Route: 065
     Dates: start: 202008
  3. BOTOX [Concomitant]
     Active Substance: ONABOTULINUMTOXINA
     Indication: MIGRAINE
     Dosage: UNK, EVERY THREE WEEKS
     Route: 065

REACTIONS (5)
  - Injection site pain [Recovered/Resolved]
  - Device dispensing error [Unknown]
  - Injection site bruising [Recovering/Resolving]
  - Injection site reaction [Unknown]
  - Injection site haemorrhage [Recovering/Resolving]

NARRATIVE: CASE EVENT DATE: 202009
